FAERS Safety Report 10911958 (Version 1)
Quarter: 2015Q1

REPORT INFORMATION
  Report Type: Spontaneous
  Country: US (occurrence: None)
  Receive Date: 20150310
  Receipt Date: 20150310
  Transmission Date: 20150721
  Serious: No
  Sender: FDA-Public Use
  Company Number: None

PATIENT
  Age: 31 Year
  Sex: Female
  Weight: 58.97 kg

DRUGS (2)
  1. MACROBID [Concomitant]
     Active Substance: NITROFURANTOIN\NITROFURANTOIN MONOHYDRATE
  2. DOXYCYCLINE HYCLATE 100MG [Suspect]
     Active Substance: DOXYCYCLINE HYCLATE
     Indication: URINARY TRACT INFECTION
     Route: 048
     Dates: start: 20150306, end: 20150307

REACTIONS (2)
  - Pruritus [None]
  - Rash papular [None]

NARRATIVE: CASE EVENT DATE: 20150308
